FAERS Safety Report 6312263-6 (Version None)
Quarter: 2009Q3

REPORT INFORMATION
  Report Type: 
  Country: None (occurrence: None)
  Receive Date: 20090817
  Receipt Date: 20090813
  Transmission Date: 20100115
  Serious: Yes (Hospitalization)
  Sender: FDA-Public Use
  Company Number: FR-WYE-G04238909

PATIENT
  Sex: Male

DRUGS (4)
  1. TAZOCILLINE [Suspect]
     Indication: FEBRILE BONE MARROW APLASIA
     Dosage: UNKNOWN
     Route: 042
     Dates: start: 20090714, end: 20090722
  2. CLADRIBINE [Suspect]
     Indication: HAIRY CELL LEUKAEMIA
     Route: 058
     Dates: start: 20090624, end: 20090713
  3. ACUPAN [Suspect]
     Dosage: UNKNOWN
     Dates: start: 20090720, end: 20090722
  4. AMIKLIN [Suspect]
     Indication: FEBRILE BONE MARROW APLASIA
     Dosage: UNKNOWN
     Dates: start: 20090714, end: 20090722

REACTIONS (5)
  - ERYTHEMA [None]
  - OEDEMA [None]
  - PRURITUS [None]
  - SKIN PLAQUE [None]
  - TOXIC SKIN ERUPTION [None]
